FAERS Safety Report 9377053 (Version 1)
Quarter: 2013Q3

REPORT INFORMATION
  Report Type: Spontaneous
  Country: FR (occurrence: FR)
  Receive Date: 20130701
  Receipt Date: 20130701
  Transmission Date: 20140515
  Serious: Yes (Other)
  Sender: FDA-Public Use
  Company Number: FR-PFIZER INC-2013190898

PATIENT
  Age: 43 Year
  Sex: Male

DRUGS (2)
  1. EFFEXOR LP [Suspect]
     Dosage: 75 MG, 1X/DAY
  2. NEURONTIN [Suspect]
     Dosage: 800 MG, 3X/DAY

REACTIONS (2)
  - Macular oedema [Unknown]
  - Eye disorder [Unknown]
